FAERS Safety Report 5142752-1 (Version None)
Quarter: 2006Q4

REPORT INFORMATION
  Report Type: 
  Country: None (occurrence: None)
  Receive Date: 20061102
  Receipt Date: 20061025
  Transmission Date: 20070319
  Serious: Yes (Other)
  Sender: FDA-Public Use
  Company Number: 2006UW20721

PATIENT
  Age: 20 Year
  Sex: Female

DRUGS (7)
  1. SEROQUEL [Suspect]
     Route: 048
  2. CHLORAL HYDRATE [Concomitant]
     Route: 048
  3. LACTAID [Concomitant]
     Route: 048
  4. LEVOTHYROXINE SODIUM [Concomitant]
     Route: 048
  5. LORAZEPAM [Concomitant]
     Route: 048
  6. METHYLPHENIDATE HCL [Concomitant]
     Route: 048
  7. TOPAMAX [Concomitant]
     Route: 048

REACTIONS (2)
  - LEUKOPENIA [None]
  - NEUTROPENIA [None]
